FAERS Safety Report 7487234-7 (Version None)
Quarter: 2011Q2

REPORT INFORMATION
  Report Type: 
  Country: None (occurrence: None)
  Receive Date: 20110510
  Receipt Date: 20110426
  Transmission Date: 20111010
  Serious: Yes (Other)
  Sender: FDA-Public Use
  Company Number: 20110249

PATIENT
  Age: 39 Year
  Sex: Female

DRUGS (3)
  1. DEXAMETHASONE [Suspect]
     Indication: ADDISON'S DISEASE
     Dosage: 4 MG AS NEEDED
     Dates: start: 20100301
  2. DEXAMETHASONE [Suspect]
     Indication: ADDISON'S DISEASE
     Dates: start: 20100301
  3. HYDROCORTISONE [Concomitant]

REACTIONS (6)
  - INJECTION SITE SWELLING [None]
  - SENSORY LOSS [None]
  - INJECTION SITE ERYTHEMA [None]
  - GAIT DISTURBANCE [None]
  - PAIN IN EXTREMITY [None]
  - FALL [None]
